FAERS Safety Report 4620237-6 (Version None)
Quarter: 2005Q1

REPORT INFORMATION
  Report Type: 
  Country: None (occurrence: None)
  Receive Date: 20050321
  Receipt Date: 20050321
  Transmission Date: 20050727
  Serious: Yes (Life-Threatening, Hospitalization, Disabling)
  Sender: FDA-Public Use
  Company Number: None

PATIENT
  Age: 45 Year
  Sex: Male
  Weight: 81.1939 kg

DRUGS (8)
  1. ZOCOR [Suspect]
     Indication: HYPERLIPIDAEMIA
     Dosage: 80 MD   ONCE DAILY   ORAL
     Route: 048
     Dates: start: 20030101, end: 20050127
  2. LISINOPRIL [Concomitant]
  3. METOPROLOL [Concomitant]
  4. HYDROCHLOROTHIAZIDE [Concomitant]
  5. ACIPHEX [Concomitant]
  6. REGLAN [Concomitant]
  7. OXYCODONE [Concomitant]
  8. PROPOXYPHENE HCL [Concomitant]

REACTIONS (1)
  - RHABDOMYOLYSIS [None]
